FAERS Safety Report 9826517 (Version 1)
Quarter: 2013Q4

REPORT INFORMATION
  Report Type: Spontaneous
  Country: US (occurrence: None)
  Receive Date: 20131223
  Receipt Date: 20131223
  Transmission Date: 20140711
  Serious: No
  Sender: FDA-Public Use
  Company Number: 221761LEO

PATIENT
  Age: 54 Year
  Sex: Male

DRUGS (8)
  1. PICATO [Suspect]
     Indication: SOLAR LENTIGO
     Dosage: DAILY FOR 3 DAYS, TOPICAL
     Route: 061
     Dates: start: 20130505, end: 20130507
  2. DIOVAN (VALSARTAN) (TABLET) [Concomitant]
  3. SINGULAR (MONTELUKAST SODIUM) [Concomitant]
  4. FLUTICASONE PROPIONATE (FLUTICASONE PROPIONATE) (FLUTICASONE PROPIONATE) [Concomitant]
  5. ASTHMANEX (ASTHMADEX) [Concomitant]
  6. NORTRIPTYLINE (NORTHRIPTYLINE) [Concomitant]
  7. PRIMIDONE (PRIMIDONE) [Concomitant]
  8. XOPENEX (LEVOSALBUTAMOL) [Concomitant]

REACTIONS (5)
  - Application site pain [None]
  - Application site erythema [None]
  - Application site discomfort [None]
  - Application site pain [None]
  - Application site reaction [None]
